FAERS Safety Report 8988220 (Version 1)
Quarter: 2012Q4

REPORT INFORMATION
  Report Type: 
  Country: CZ (occurrence: CZ)
  Receive Date: 20121227
  Receipt Date: 20121227
  Transmission Date: 20130627
  Serious: Yes (Death, Other)
  Sender: FDA-Public Use
  Company Number: CZ-ROCHE-1174067

PATIENT

DRUGS (3)
  1. CAPECITABINE [Suspect]
     Indication: COLORECTAL CANCER
     Route: 065
  2. CAPECITABINE [Suspect]
     Indication: BREAST CANCER
  3. CAPECITABINE [Suspect]
     Indication: GASTRIC CANCER

REACTIONS (12)
  - Pancytopenia [Fatal]
  - Arrhythmia [Unknown]
  - Acute myocardial infarction [Unknown]
  - Angina pectoris [Unknown]
  - Mucosal inflammation [Unknown]
  - Transaminases increased [Unknown]
  - Neurotoxicity [Unknown]
  - Dyspepsia [Unknown]
  - Diarrhoea [Unknown]
  - Vomiting [Unknown]
  - Palmar-plantar erythrodysaesthesia syndrome [Unknown]
  - Haematotoxicity [Unknown]
